FAERS Safety Report 23125353 (Version 2)
Quarter: 2023Q4

REPORT INFORMATION
  Report Type: Spontaneous
  Country: FR (occurrence: FR)
  Receive Date: 20231030
  Receipt Date: 20231101
  Transmission Date: 20240109
  Serious: Yes (Hospitalization, Disabling, Other)
  Sender: FDA-Public Use
  Company Number: FR-SA-2021SA029794

PATIENT
  Age: 65 Year
  Sex: Female

DRUGS (11)
  1. CHOLECALCIFEROL [Suspect]
     Active Substance: CHOLECALCIFEROL
     Indication: Supplementation therapy
     Dosage: DOSE DESCRIPTION : 800 IU, QD
     Route: 065
  2. CHOLECALCIFEROL [Suspect]
     Active Substance: CHOLECALCIFEROL
     Indication: Vitamin supplementation
  3. CALCIUM [Suspect]
     Active Substance: CALCIUM
     Indication: Mineral supplementation
     Dosage: DOSE DESCRIPTION : 1200 MG, QD
     Route: 065
  4. ERGOCALCIFEROL [Suspect]
     Active Substance: ERGOCALCIFEROL
     Indication: Vitamin supplementation
     Dosage: DOSE DESCRIPTION : 6000000 IU, Q3M
     Route: 065
  5. CALCITRIOL [Suspect]
     Active Substance: CALCITRIOL
     Indication: Vitamin supplementation
     Dosage: DOSE DESCRIPTION : 0.25 UG, QD
     Route: 065
  6. METFORMIN [Concomitant]
     Active Substance: METFORMIN HYDROCHLORIDE
     Indication: Type 2 diabetes mellitus
     Dosage: DOSE DESCRIPTION : UNK
     Route: 065
  7. VILDAGLIPTIN [Concomitant]
     Active Substance: VILDAGLIPTIN
     Indication: Type 2 diabetes mellitus
     Dosage: DOSE DESCRIPTION : UNK
     Route: 065
  8. GLICLAZIDE [Concomitant]
     Active Substance: GLICLAZIDE
     Indication: Type 2 diabetes mellitus
     Dosage: DOSE DESCRIPTION : UNK
     Route: 065
  9. DILTIAZEM [Concomitant]
     Active Substance: DILTIAZEM
     Indication: Hypertension
     Dosage: DOSE DESCRIPTION : UNK
     Route: 065
  10. HYDROCHLOROTHIAZIDE [Concomitant]
     Active Substance: HYDROCHLOROTHIAZIDE
     Indication: Hypertension
     Dosage: DOSE DESCRIPTION : UNK
     Route: 065
  11. IRBESARTAN [Concomitant]
     Active Substance: IRBESARTAN
     Indication: Hypertension
     Dosage: DOSE DESCRIPTION : UNK
     Route: 065

REACTIONS (10)
  - Calciphylaxis [Recovered/Resolved]
  - Abdominal mass [Recovered/Resolved]
  - Skin necrosis [Recovered/Resolved]
  - Skin induration [Recovered/Resolved]
  - Abdominal pain [Recovered/Resolved]
  - Hypercalcaemia [Recovered/Resolved]
  - Ulcer [Recovered/Resolved]
  - Pseudomonas infection [Recovering/Resolving]
  - Impaired quality of life [Recovering/Resolving]
  - Overdose [Recovered/Resolved]
